FAERS Safety Report 21860026 (Version 8)
Quarter: 2023Q1

REPORT INFORMATION
  Report Type: Report from Study
  Country: US (occurrence: US)
  Receive Date: 20230113
  Receipt Date: 20230213
  Transmission Date: 20230418
  Serious: Yes (Hospitalization, Other)
  Sender: FDA-Public Use
  Company Number: US-AMGEN-USACT2023003360

PATIENT
  Age: 88 Year
  Sex: Female
  Weight: 48.4 kg

DRUGS (12)
  1. SOTORASIB [Suspect]
     Active Substance: SOTORASIB
     Indication: Non-small cell lung cancer stage IV
     Dosage: 960 MILLIGRAM
     Route: 048
     Dates: start: 20221212
  2. SOTORASIB [Suspect]
     Active Substance: SOTORASIB
     Indication: K-ras gene mutation
  3. PALBOCICLIB [Suspect]
     Active Substance: PALBOCICLIB
     Indication: Non-small cell lung cancer stage IV
     Dosage: 125 MILLIGRAM
     Route: 048
     Dates: start: 20221212
  4. PALBOCICLIB [Suspect]
     Active Substance: PALBOCICLIB
     Indication: K-ras gene mutation
  5. VITAMIN B12 [Concomitant]
     Active Substance: CYANOCOBALAMIN
     Dosage: 2500 MICROGRAM
     Route: 048
     Dates: start: 20170101
  6. MAGNESIUM [Concomitant]
     Active Substance: MAGNESIUM
     Dosage: 250 MILLIGRAM
     Route: 048
     Dates: start: 20170101
  7. METRONIDAZOLE [Concomitant]
     Active Substance: METRONIDAZOLE
     Dosage: 1 UNK
     Route: 061
     Dates: start: 19970101
  8. ROPINIROLE [Concomitant]
     Active Substance: ROPINIROLE
     Dosage: 0.25 MILLIGRAM
     Route: 048
     Dates: start: 20160101
  9. LEVOTHYROXINE [Concomitant]
     Active Substance: LEVOTHYROXINE
     Dosage: 88 MILLIGRAM
     Route: 048
     Dates: start: 19500101
  10. VITAMINS [Concomitant]
     Active Substance: VITAMINS
     Dosage: 1 UNK
     Route: 048
     Dates: start: 20221118
  11. HYDROCORTISONE [Concomitant]
     Active Substance: HYDROCORTISONE
     Dosage: 2.5 UNK
     Route: 061
     Dates: start: 20220601
  12. SYSTANE (HYPROMELLOSE 2910 (4000 MPA.S)) [Concomitant]
     Active Substance: HYPROMELLOSE 2910 (4000 MPA.S)
     Dosage: 1 GTT DROPS
     Route: 047
     Dates: start: 20170101

REACTIONS (1)
  - Febrile neutropenia [Recovered/Resolved]

NARRATIVE: CASE EVENT DATE: 20230107
